FAERS Safety Report 15982246 (Version 1)
Quarter: 2019Q1

REPORT INFORMATION
  Report Type: Spontaneous
  Country: US (occurrence: US)
  Receive Date: 20190219
  Receipt Date: 20190219
  Transmission Date: 20190418
  Serious: Yes (Hospitalization)
  Sender: FDA-Public Use
  Company Number: US-PFIZER INC-2019066274

PATIENT
  Sex: Female
  Weight: 93 kg

DRUGS (1)
  1. IBRANCE [Suspect]
     Active Substance: PALBOCICLIB
     Indication: BREAST CANCER FEMALE
     Dosage: 125 MG, CYCLIC [ONE A DAY FOR 21 DAYS]
     Route: 048

REACTIONS (2)
  - Malaise [Unknown]
  - Neoplasm progression [Unknown]
